FAERS Safety Report 7572030-2 (Version None)
Quarter: 2011Q2

REPORT INFORMATION
  Report Type: 
  Country: None (occurrence: None)
  Receive Date: 20110624
  Receipt Date: 20110617
  Transmission Date: 20111010
  Serious: Yes (Other)
  Sender: FDA-Public Use
  Company Number: JP-CEPHALON-2011002994

PATIENT

DRUGS (1)
  1. BENDAMUSTINE HCL [Suspect]
     Indication: B-CELL LYMPHOMA
     Route: 041
     Dates: start: 20110411, end: 20110412

REACTIONS (2)
  - LYMPHOCYTE COUNT DECREASED [None]
  - INTERSTITIAL LUNG DISEASE [None]
